FAERS Safety Report 9931574 (Version 2)
Quarter: 2014Q1

REPORT INFORMATION
  Report Type: Report from Study
  Country: US (occurrence: US)
  Receive Date: 20140228
  Receipt Date: 20140303
  Transmission Date: 20141002
  Serious: Yes (Hospitalization, Other)
  Sender: FDA-Public Use
  Company Number: US-ROCHE-1356822

PATIENT
  Age: 66 Year
  Sex: Male

DRUGS (14)
  1. LUCENTIS [Suspect]
     Indication: EYE HAEMORRHAGE
     Dosage: INJECTION BOTH EYES, LATER THE FREQUENCY WAS CHANGED TO EVERY 2 WEEKS
     Route: 050
  2. LUCENTIS [Suspect]
     Indication: EYE DISORDER
     Dosage: RIGHT EYE
     Route: 065
  3. VALIUM [Suspect]
     Indication: PRODUCT USED FOR UNKNOWN INDICATION
     Route: 065
  4. DEXAMETHASONE [Concomitant]
  5. LORATAB [Concomitant]
     Dosage: 10/500 MG
     Route: 065
  6. IBUPROFEN [Concomitant]
     Route: 065
  7. COREG [Concomitant]
     Route: 065
  8. BABY ASPIRIN [Concomitant]
  9. TESSALON [Concomitant]
  10. COMPAZINE [Concomitant]
     Route: 065
  11. FINASTERIDE [Concomitant]
  12. ELAVIL (UNITED STATES) [Concomitant]
     Route: 065
  13. OXYGEN [Concomitant]
     Dosage: CONTINUOUS
     Route: 055
  14. PRAVACHOL [Concomitant]
     Dosage: AT BEDTIME
     Route: 055

REACTIONS (5)
  - Pneumonia [Recovering/Resolving]
  - Hallucination [Recovered/Resolved]
  - Abasia [Not Recovered/Not Resolved]
  - Lung cancer metastatic [Not Recovered/Not Resolved]
  - Headache [Unknown]
